FAERS Safety Report 4464216-0 (Version None)
Quarter: 2004Q4

REPORT INFORMATION
  Report Type: 
  Country: None (occurrence: None)
  Receive Date: 20041001
  Receipt Date: 20040915
  Transmission Date: 20050328
  Serious: Yes (Death, Disabling)
  Sender: FDA-Public Use
  Company Number: JP-GLAXOSMITHKLINE-B0345562A

PATIENT
  Age: 92 Year
  Sex: Male

DRUGS (5)
  1. ZOVIRAX [Suspect]
     Indication: HERPES ZOSTER
     Dosage: 250MG TWICE PER DAY
     Route: 042
     Dates: start: 20040901, end: 20040909
  2. FUROSEMIDE [Concomitant]
     Dosage: 10MG PER DAY
     Route: 048
  3. THEO-DUR [Concomitant]
     Dosage: 200MG PER DAY
     Route: 048
  4. THYRADIN S [Concomitant]
     Dosage: 150MCG PER DAY
     Route: 048
  5. PEON [Concomitant]
     Dosage: 240MG PER DAY
     Route: 048

REACTIONS (3)
  - DEPRESSED LEVEL OF CONSCIOUSNESS [None]
  - LOBAR PNEUMONIA [None]
  - RESPIRATORY FAILURE [None]
